FAERS Safety Report 24984570 (Version 3)
Quarter: 2025Q2

REPORT INFORMATION
  Report Type: Spontaneous
  Country: US (occurrence: US)
  Receive Date: 20250219
  Receipt Date: 20250401
  Transmission Date: 20250716
  Serious: Yes (Hospitalization)
  Sender: SUNOVION
  Company Number: US-SMPA-2025SPA001684

PATIENT

DRUGS (2)
  1. ORGOVYX [Suspect]
     Active Substance: RELUGOLIX
     Indication: Prostate cancer
     Dosage: 240 MG, QD
     Route: 048
  2. ERLEADA [Concomitant]
     Active Substance: APALUTAMIDE
     Route: 065

REACTIONS (2)
  - Surgery [Unknown]
  - Therapy interrupted [Unknown]
